FAERS Safety Report 9254508 (Version 1)
Quarter: 2013Q2

REPORT INFORMATION
  Report Type: Spontaneous
  Country: US (occurrence: None)
  Receive Date: 20130422
  Receipt Date: 20130422
  Transmission Date: 20140414
  Serious: Yes (Other)
  Sender: FDA-Public Use
  Company Number: None

PATIENT
  Age: 57 Year
  Sex: Female
  Weight: 73.94 kg

DRUGS (5)
  1. TRAMADOL [Suspect]
     Indication: BACK PAIN
     Dosage: 1 TO 2 CAPLETS 4-6 HOURS-
     Dates: start: 20110714, end: 20120620
  2. TRAMADOL [Suspect]
     Indication: PAIN IN EXTREMITY
     Dosage: 1 TO 2 CAPLETS 4-6 HOURS-
     Dates: start: 20110714, end: 20120620
  3. TRAMADOL [Suspect]
     Indication: ARTHRALGIA
     Dosage: 1 TO 2 CAPLETS 4-6 HOURS-
     Dates: start: 20110714, end: 20120620
  4. TRAMADOL [Suspect]
     Indication: MUSCULOSKELETAL PAIN
     Dosage: 1 TO 2 CAPLETS 4-6 HOURS-
     Dates: start: 20110714, end: 20120620
  5. TRAMADOL [Suspect]
     Indication: NEURALGIA
     Dosage: 1 TO 2 CAPLETS 4-6 HOURS-
     Dates: start: 20110714, end: 20120620

REACTIONS (8)
  - Muscle twitching [None]
  - Muscle atrophy [None]
  - Local swelling [None]
  - Local swelling [None]
  - Drug dependence [None]
  - Restless legs syndrome [None]
  - Anxiety [None]
  - Discomfort [None]
